FAERS Safety Report 4294610-2 (Version None)
Quarter: 2004Q1

REPORT INFORMATION
  Report Type: 
  Country: None (occurrence: None)
  Receive Date: 20040211
  Receipt Date: 20031217
  Transmission Date: 20041129
  Serious: Yes (Other)
  Sender: FDA-Public Use
  Company Number: APCDSS2003000680

PATIENT
  Age: 25 Year
  Sex: Female

DRUGS (10)
  1. REMICADE [Suspect]
     Indication: CROHN'S DISEASE
     Dosage: SEE IMAGE
     Route: 041
     Dates: start: 20030311, end: 20030311
  2. REMICADE [Suspect]
     Indication: CROHN'S DISEASE
     Dosage: SEE IMAGE
     Route: 041
     Dates: start: 20030711, end: 20030711
  3. LAC B (LACTOBACILLUS BIFIDUS, LYOPHILIZED) [Concomitant]
  4. FAMOTIDINE [Concomitant]
  5. MESALAZINE (MESALAZINE) [Concomitant]
  6. BETAMETHASONE [Concomitant]
  7. PREDNISOLONE [Concomitant]
  8. ETHYL ICOSAPENTATE (ETHYL ICOSAPENTATE) [Concomitant]
  9. DRIED HUMAN ANTIHEMOPHILIC FACTOR I3 (FACTOR VIII (ANTIHAEMOPHILIC FAC [Concomitant]
  10. LEBENIN S (ALL OTHER THERAPEUTIC PRODUCTS) [Concomitant]

REACTIONS (6)
  - EXANTHEM [None]
  - HEPATIC FUNCTION ABNORMAL [None]
  - JAUNDICE [None]
  - LIVER DISORDER [None]
  - LYMPHOCYTE MORPHOLOGY ABNORMAL [None]
  - WHITE BLOOD CELL COUNT DECREASED [None]
